FAERS Safety Report 10581847 (Version 1)
Quarter: 2014Q4

REPORT INFORMATION
  Report Type: Spontaneous
  Country: IR (occurrence: IR)
  Receive Date: 20141113
  Receipt Date: 20141113
  Transmission Date: 20150529
  Serious: Yes (Hospitalization, Other)
  Sender: FDA-Public Use
  Company Number: IR-ACTAVIS-2014-24014

PATIENT
  Sex: Male

DRUGS (4)
  1. MAGNESIUM SULFATE. [Suspect]
     Active Substance: MAGNESIUM SULFATE
     Dosage: UNK; REPEATED EVERY 4 HOURS UNTIL THE SIXTH DOSE
     Route: 064
  2. BETAMETHASONE (UNKNOWN) [Suspect]
     Active Substance: BETAMETHASONE
     Indication: GESTATIONAL HYPERTENSION
     Dosage: 12 MG, UNK; 2 INJECTIONS
     Route: 064
  3. LIDOCAINE. [Suspect]
     Active Substance: LIDOCAINE
     Indication: GESTATIONAL HYPERTENSION
     Dosage: 1 ML, UNK; REPEATED EVERY 4 HOURS UNTIL THE SIXTH DOSE
     Route: 064
  4. MAGNESIUM SULFATE. [Suspect]
     Active Substance: MAGNESIUM SULFATE
     Indication: GESTATIONAL HYPERTENSION
     Dosage: 4 G, SINGLE; INITIALLY
     Route: 064

REACTIONS (2)
  - Foetal exposure during pregnancy [Recovered/Resolved]
  - Bradycardia foetal [Recovered/Resolved]
